FAERS Safety Report 4319378-2 (Version None)
Quarter: 2004Q1

REPORT INFORMATION
  Report Type: 
  Country: None (occurrence: None)
  Receive Date: 20040318
  Receipt Date: 20040318
  Transmission Date: 20041129
  Serious: Yes (Hospitalization)
  Sender: FDA-Public Use
  Company Number: None

PATIENT
  Sex: Female

DRUGS (12)
  1. AMIODARONE HCL [Suspect]
     Indication: ATRIAL FIBRILLATION
     Dosage: 200 MG QD ORAL
     Route: 048
     Dates: start: 20030501, end: 20030602
  2. DIGOXIN [Suspect]
     Indication: ATRIAL FIBRILLATION
     Dosage: 0.125 MG QD ORAL
     Route: 048
     Dates: start: 20030301, end: 20030602
  3. DIGOXIN [Concomitant]
  4. AMIODARONE HCL [Concomitant]
  5. WARFARIN SODIUM [Concomitant]
  6. DILTIAZEM [Concomitant]
  7. FUROSEMIDE [Concomitant]
  8. CLONIDINE [Concomitant]
  9. LOSARTAN [Concomitant]
  10. PANTOPRAZOLE [Concomitant]
  11. SIMVASTATIN [Concomitant]
  12. ACETAMINOPHEN [Concomitant]

REACTIONS (2)
  - NAUSEA [None]
  - VOMITING [None]
